FAERS Safety Report 5417000-5 (Version None)
Quarter: 2007Q3

REPORT INFORMATION
  Report Type: 
  Country: None (occurrence: None)
  Receive Date: 20070816
  Receipt Date: 20070809
  Transmission Date: 20080115
  Serious: Yes (Disabling, Other)
  Sender: FDA-Public Use
  Company Number: AU-ASTRAZENECA-2007AP03019

PATIENT
  Age: 736 Month
  Sex: Female
  Weight: 82 kg

DRUGS (3)
  1. ARIMIDEX [Suspect]
     Indication: BREAST CANCER
     Route: 048
     Dates: start: 20060101
  2. CHEMOTHERAPY [Concomitant]
  3. RADIOTHERAPY [Concomitant]

REACTIONS (1)
  - PAIN IN EXTREMITY [None]
